FAERS Safety Report 12810935 (Version 1)
Quarter: 2016Q4

REPORT INFORMATION
  Report Type: Spontaneous
  Country: CA (occurrence: US)
  Receive Date: 20161005
  Receipt Date: 20161005
  Transmission Date: 20170207
  Serious: No
  Sender: FDA-Public Use
  Company Number: None

PATIENT
  Age: 73 Year
  Sex: Female
  Weight: 54.43 kg

DRUGS (6)
  1. RANITIDINE. [Concomitant]
     Active Substance: RANITIDINE
  2. MAGNESIUM [Concomitant]
     Active Substance: MAGNESIUM
  3. TYLENOL [Concomitant]
     Active Substance: ACETAMINOPHEN
  4. VITAMIN B12 [Concomitant]
     Active Substance: CYANOCOBALAMIN
  5. PRAVASTATIN. [Concomitant]
     Active Substance: PRAVASTATIN
  6. CIPROFLOXACIN. [Suspect]
     Active Substance: CIPROFLOXACIN
     Indication: DIVERTICULITIS
     Dosage: 500MG 1 PILL TWICE DAILY BY MOUTH
     Route: 048
     Dates: start: 20160829, end: 20160901

REACTIONS (3)
  - Abasia [None]
  - Pelvic pain [None]
  - Pain in extremity [None]

NARRATIVE: CASE EVENT DATE: 20160831
